FAERS Safety Report 20606933 (Version 2)
Quarter: 2022Q2

REPORT INFORMATION
  Report Type: Spontaneous
  Country: US (occurrence: US)
  Receive Date: 20220317
  Receipt Date: 20220401
  Transmission Date: 20220720
  Serious: Yes (Other)
  Sender: FDA-Public Use
  Company Number: US-009507513-2203USA003358

PATIENT
  Age: 23 Year
  Sex: Female

DRUGS (1)
  1. PRINIVIL [Suspect]
     Active Substance: LISINOPRIL
     Dosage: START DATE: A FEW WEEKS BEFORE PRESENTATION
     Route: 048

REACTIONS (1)
  - Intestinal angioedema [Recovered/Resolved]
